FAERS Safety Report 25176275 (Version 2)
Quarter: 2025Q2

REPORT INFORMATION
  Report Type: Spontaneous
  Country: CA (occurrence: CA)
  Receive Date: 20250409
  Receipt Date: 20250421
  Transmission Date: 20250717
  Serious: Yes (Other)
  Sender: ALKEM
  Company Number: None

PATIENT
  Age: 61 Year
  Sex: Male

DRUGS (9)
  1. TACROLIMUS [Suspect]
     Active Substance: TACROLIMUS
     Indication: Prophylaxis against graft versus host disease
     Route: 065
  2. THYMOCYTE IMMUNE GLOBULIN NOS [Suspect]
     Active Substance: THYMOCYTE IMMUNE GLOBULIN NOS
     Indication: Prophylaxis against graft versus host disease
     Route: 065
  3. BUSULFAN [Suspect]
     Active Substance: BUSULFAN
     Indication: Bone marrow conditioning regimen
     Route: 042
  4. CYCLOSPORINE [Suspect]
     Active Substance: CYCLOSPORINE
     Indication: Immunosuppressant drug therapy
     Route: 042
  5. CYCLOSPORINE [Suspect]
     Active Substance: CYCLOSPORINE
     Route: 065
  6. FLUDARABINE [Suspect]
     Active Substance: FLUDARABINE PHOSPHATE
     Indication: Bone marrow conditioning regimen
     Route: 042
  7. METHOTREXATE [Suspect]
     Active Substance: METHOTREXATE
     Indication: Prophylaxis against graft versus host disease
     Route: 065
  8. PREDNISONE [Suspect]
     Active Substance: PREDNISONE
     Indication: VEXAS syndrome
     Route: 065
  9. PREDNISONE [Suspect]
     Active Substance: PREDNISONE
     Dosage: UNK, QD (TAPERED TO A DAILY DOSE BELOW 20 MG)
     Route: 065

REACTIONS (6)
  - Kaposi^s sarcoma [Recovering/Resolving]
  - Kaposi^s sarcoma [Recovering/Resolving]
  - Cytomegalovirus infection reactivation [Not Recovered/Not Resolved]
  - Acute graft versus host disease in skin [Recovered/Resolved]
  - Graft versus host disease in gastrointestinal tract [Recovered/Resolved]
  - Human herpesvirus 8 infection [Unknown]
